FAERS Safety Report 12490393 (Version 3)
Quarter: 2016Q3

REPORT INFORMATION
  Report Type: Report from Study
  Country: BR (occurrence: BR)
  Receive Date: 20160622
  Receipt Date: 20160727
  Transmission Date: 20161109
  Serious: Yes (Hospitalization)
  Sender: FDA-Public Use
  Company Number: PHHY2016BR045413

PATIENT
  Sex: Female
  Weight: 75 kg

DRUGS (1)
  1. EXJADE [Suspect]
     Active Substance: DEFERASIROX
     Indication: MYELODYSPLASTIC SYNDROME
     Dosage: 5 DF OF 500 MG, UNK
     Route: 065
     Dates: start: 201503

REACTIONS (9)
  - Bone marrow failure [Recovering/Resolving]
  - Drug intolerance [Unknown]
  - Asthenia [Unknown]
  - Hypovitaminosis [Unknown]
  - Malaise [Unknown]
  - Abasia [Unknown]
  - Haemoglobin decreased [Unknown]
  - Platelet count decreased [Unknown]
  - Blood iron increased [Unknown]
